FAERS Safety Report 12444932 (Version 1)
Quarter: 2016Q2

REPORT INFORMATION
  Report Type: Spontaneous
  Country: None (occurrence: RU)
  Receive Date: 20160607
  Receipt Date: 20160607
  Transmission Date: 20160815
  Serious: Yes (Death)
  Sender: FDA-Public Use
  Company Number: RU-BIOMARINAP-RU-2016-109992

PATIENT
  Age: 28 Month
  Sex: Female
  Weight: 11.5 kg

DRUGS (1)
  1. ALDURAZYME [Suspect]
     Active Substance: LARONIDASE
     Indication: MUCOPOLYSACCHARIDOSIS I
     Dosage: UNK, QW
     Route: 041
     Dates: start: 20150928, end: 20160323

REACTIONS (4)
  - Seizure [Fatal]
  - Neurotoxicity [Fatal]
  - Human polyomavirus infection [Fatal]
  - Multiple organ dysfunction syndrome [Fatal]
